FAERS Safety Report 5961469-4 (Version None)
Quarter: 2008Q4

REPORT INFORMATION
  Report Type: 
  Country: None (occurrence: None)
  Receive Date: 20081119
  Receipt Date: 20081105
  Transmission Date: 20090506
  Serious: Yes (Other)
  Sender: FDA-Public Use
  Company Number: 20080299

PATIENT
  Age: 38 Year
  Sex: Female
  Weight: 73.4827 kg

DRUGS (1)
  1. VENOFER [Suspect]
     Dosage: 100 MG WEEKLY X 2 INTRAVENOUS
     Route: 042
     Dates: start: 20081001, end: 20081008

REACTIONS (5)
  - DRUG INEFFECTIVE [None]
  - PALPITATIONS [None]
  - SINUS TACHYCARDIA [None]
  - SUPRAVENTRICULAR TACHYCARDIA [None]
  - THYROXINE FREE INCREASED [None]
